FAERS Safety Report 11912634 (Version 1)
Quarter: 2016Q1

REPORT INFORMATION
  Report Type: Spontaneous
  Country: US (occurrence: None)
  Receive Date: 20160112
  Receipt Date: 20160112
  Transmission Date: 20160526
  Serious: Yes (Death)
  Sender: FDA-Public Use
  Company Number: None

PATIENT
  Age: 44 Year
  Sex: Female

DRUGS (1)
  1. CAPECITABINE 500MG TEVA [Suspect]
     Active Substance: CAPECITABINE
     Indication: PRODUCT USED FOR UNKNOWN INDICATION
     Dosage: 1000MG BID X2WEEKS-OFF 1WEEK BY MOUTH
     Route: 048
     Dates: start: 20151022, end: 20151215

REACTIONS (2)
  - Malignant neoplasm progression [None]
  - Breast cancer [None]

NARRATIVE: CASE EVENT DATE: 20151215
